FAERS Safety Report 8859487 (Version 1)
Quarter: 2012Q4

REPORT INFORMATION
  Report Type: 
  Country: CN (occurrence: CN)
  Receive Date: 20121024
  Receipt Date: 20121024
  Transmission Date: 20130627
  Serious: Yes (Death)
  Sender: FDA-Public Use
  Company Number: PHHY2012CN094973

PATIENT
  Age: 33 Year
  Sex: Female

DRUGS (7)
  1. CICLOSPORIN [Suspect]
     Indication: GRAFT VERSUS HOST DISEASE
  2. MYCOPHENOLATE MOFETIL [Concomitant]
     Indication: GRAFT VERSUS HOST DISEASE
     Dosage: 0.5 mg, BID
  3. METHOTREXATE [Concomitant]
     Indication: GRAFT VERSUS HOST DISEASE
     Dosage: 10 mg/m2, UNK
  4. CYCLOPHOSPHAMIDE [Concomitant]
     Dosage: 1.8 mg/m2, UNK
  5. BUSULFAN [Concomitant]
     Dosage: 4 mg/m2, UNK
  6. GANCICLOVIR [Concomitant]
     Dosage: 10 mg/m2, UNK
  7. ANTITHYMOCYTE IMMUNOGLOBULIN [Concomitant]

REACTIONS (1)
  - Death [Fatal]
